FAERS Safety Report 21115794 (Version 1)
Quarter: 2022Q3

REPORT INFORMATION
  Report Type: Spontaneous
  Country: US (occurrence: US)
  Receive Date: 20220721
  Receipt Date: 20220721
  Transmission Date: 20221027
  Serious: Yes (Hospitalization, Other)
  Sender: FDA-Public Use
  Company Number: US-SA-SAC20220719002130

PATIENT
  Age: 69 Year
  Sex: Female

DRUGS (10)
  1. AUBAGIO [Suspect]
     Active Substance: TERIFLUNOMIDE
     Indication: Multiple sclerosis
     Dosage: 1 DF, QD
     Route: 048
     Dates: start: 20210302
  2. BACLOFEN [Concomitant]
     Active Substance: BACLOFEN
  3. ELIQUIS [Concomitant]
     Active Substance: APIXABAN
  4. FUROSEMIDE [Concomitant]
     Active Substance: FUROSEMIDE
  5. IBANDRONATE SODIUM [Concomitant]
     Active Substance: IBANDRONATE SODIUM
  6. METOPROLOL [Concomitant]
     Active Substance: METOPROLOL
  7. PRAVASTATIN [Concomitant]
     Active Substance: PRAVASTATIN
  8. ROPINIROLE [Concomitant]
     Active Substance: ROPINIROLE
  9. SERTRALINE [Concomitant]
     Active Substance: SERTRALINE HYDROCHLORIDE
  10. LEVOTHYROXINE [Concomitant]
     Active Substance: LEVOTHYROXINE

REACTIONS (1)
  - Pneumonia [Unknown]
